FAERS Safety Report 23039403 (Version 2)
Quarter: 2023Q4

REPORT INFORMATION
  Report Type: Spontaneous
  Country: JP (occurrence: None)
  Receive Date: 20231006
  Receipt Date: 20231124
  Transmission Date: 20240110
  Serious: Yes (Other)
  Sender: FDA-Public Use
  Company Number: 2023A225237

PATIENT
  Sex: Male

DRUGS (3)
  1. DAPAGLIFLOZIN [Suspect]
     Active Substance: DAPAGLIFLOZIN
     Indication: Chronic kidney disease
     Route: 048
     Dates: end: 202308
  2. SPIRONOLACTONE [Suspect]
     Active Substance: SPIRONOLACTONE
     Dates: start: 202308
  3. AZOSEMIDE [Suspect]
     Active Substance: AZOSEMIDE
     Dates: start: 202308

REACTIONS (2)
  - Renal impairment [Recovered/Resolved]
  - Dehydration [Recovering/Resolving]

NARRATIVE: CASE EVENT DATE: 20230801
